FAERS Safety Report 11990948 (Version 1)
Quarter: 2016Q1

REPORT INFORMATION
  Report Type: Spontaneous
  Country: CA (occurrence: CA)
  Receive Date: 20160202
  Receipt Date: 20160202
  Transmission Date: 20160526
  Serious: Yes (Hospitalization, Other)
  Sender: FDA-Public Use
  Company Number: CA-TEVA-629718ACC

PATIENT
  Age: 11 Month
  Sex: Male
  Weight: 9 kg

DRUGS (6)
  1. VANCOMYCIN HYDROCHLORIDE FOR INJECTION, USP [Suspect]
     Active Substance: VANCOMYCIN HYDROCHLORIDE
     Indication: NEPHROPATHY TOXIC
     Dosage: 1 EVERY 12 SECOND(S)
     Route: 042
  2. AZITHROMYCIN ANHYDROUS. [Concomitant]
     Active Substance: AZITHROMYCIN ANHYDROUS
  3. CEFTRIAXONE FOR INJECTION USP [Concomitant]
     Route: 030
  4. ACETAMINOPHEN. [Concomitant]
     Active Substance: ACETAMINOPHEN
  5. IBUPROFEN. [Suspect]
     Active Substance: IBUPROFEN
     Indication: PYREXIA
     Dosage: 300 MILLIGRAM DAILY;
     Route: 048
  6. FERROUS SULFATE [Concomitant]
     Active Substance: FERROUS SULFATE\FERROUS SULFATE, DRIED

REACTIONS (2)
  - Blood creatinine increased [Recovered/Resolved]
  - Drug level increased [Recovered/Resolved]
